FAERS Safety Report 4664042-3 (Version None)
Quarter: 2005Q2

REPORT INFORMATION
  Report Type: 
  Country: None (occurrence: None)
  Receive Date: 20050509
  Receipt Date: 20050422
  Transmission Date: 20051028
  Serious: Yes (Life-Threatening)
  Sender: FDA-Public Use
  Company Number: 603463

PATIENT
  Sex: Female

DRUGS (1)
  1. ARALAST [Suspect]
     Dates: end: 20050421

REACTIONS (2)
  - INFUSION SITE PRURITUS [None]
  - SWOLLEN TONGUE [None]
